FAERS Safety Report 23737681 (Version 1)
Quarter: 2024Q2

REPORT INFORMATION
  Report Type: Spontaneous
  Country: HR (occurrence: HR)
  Receive Date: 20240412
  Receipt Date: 20240412
  Transmission Date: 20240716
  Serious: Yes (Other)
  Sender: FDA-Public Use
  Company Number: None

PATIENT
  Age: 49 Year
  Sex: Female

DRUGS (1)
  1. HYRIMOZ [Suspect]
     Active Substance: ADALIMUMAB-ADAZ
     Indication: Colitis ulcerative
     Dosage: JACINA LIJEKA 40 MGDOZIRANJE SVAKA 2 TJEDNA
     Route: 058
     Dates: start: 20230714, end: 20240314

REACTIONS (1)
  - Inflammatory bowel disease [Recovering/Resolving]

NARRATIVE: CASE EVENT DATE: 20240314
